FAERS Safety Report 19420376 (Version 1)
Quarter: 2021Q2

REPORT INFORMATION
  Report Type: Spontaneous
  Country: US (occurrence: US)
  Receive Date: 20210615
  Receipt Date: 20210615
  Transmission Date: 20210717
  Serious: Yes (Hospitalization)
  Sender: FDA-Public Use
  Company Number: US-MALLINCKRODT PHARMACEUTICALS-T202102571

PATIENT
  Age: 7 Month
  Sex: Male
  Weight: 7 kg

DRUGS (1)
  1. H.P. ACTHAR [Suspect]
     Active Substance: CORTICOTROPIN
     Indication: INFANTILE SPASMS
     Dosage: 80 UNITS DAILY
     Route: 030

REACTIONS (4)
  - Dyskinesia [Unknown]
  - Trismus [Unknown]
  - Muscle spasms [Unknown]
  - Milk allergy [Unknown]

NARRATIVE: CASE EVENT DATE: 20210601
